FAERS Safety Report 4327134-4 (Version None)
Quarter: 2004Q1

REPORT INFORMATION
  Report Type: 
  Country: None (occurrence: None)
  Receive Date: 20040330
  Receipt Date: 20040323
  Transmission Date: 20041129
  Serious: Yes (Other)
  Sender: FDA-Public Use
  Company Number: US-GLAXOSMITHKLINE-A0504046A

PATIENT
  Age: 61 Year
  Sex: Female

DRUGS (8)
  1. AVANDIA [Suspect]
     Dosage: 4MG PER DAY
     Route: 048
  2. PROCRIT [Concomitant]
  3. LIPITOR [Concomitant]
  4. LEVOXYL [Concomitant]
  5. ASPIRIN [Concomitant]
  6. ACCUPRIL [Concomitant]
  7. PROTONIX [Concomitant]
  8. LASIX [Concomitant]

REACTIONS (7)
  - ABDOMINAL DISTENSION [None]
  - BLADDER NEOPLASM [None]
  - OEDEMA PERIPHERAL [None]
  - PALPITATIONS [None]
  - SWELLING [None]
  - VARICELLA [None]
  - WEIGHT INCREASED [None]
